FAERS Safety Report 18234311 (Version 1)
Quarter: 2020Q3

REPORT INFORMATION
  Report Type: Spontaneous
  Country: US (occurrence: US)
  Receive Date: 20200904
  Receipt Date: 20200904
  Transmission Date: 20201103
  Serious: Yes (Hospitalization)
  Sender: FDA-Public Use
  Company Number: US-VIFOR (INTERNATIONAL) INC.-VIT-2020-09258

PATIENT
  Age: 75 Year
  Sex: Female

DRUGS (24)
  1. VELTASSA [Suspect]
     Active Substance: PATIROMER
     Route: 048
     Dates: start: 20170406
  2. CLOPIDOGREL [Concomitant]
     Active Substance: CLOPIDOGREL BISULFATE
  3. FIASP [Concomitant]
     Active Substance: INSULIN ASPART
  4. ATORVASTATIN [Concomitant]
     Active Substance: ATORVASTATIN
  5. PERPHENAZINE. [Concomitant]
     Active Substance: PERPHENAZINE
  6. VENTOLIN [Concomitant]
     Active Substance: ALBUTEROL SULFATE
  7. ESOMEPRAZOLE MAGNESIUM. [Concomitant]
     Active Substance: ESOMEPRAZOLE MAGNESIUM
  8. FLUTICASONE. [Concomitant]
     Active Substance: FLUTICASONE
  9. SYMBICORT [Concomitant]
     Active Substance: BUDESONIDE\FORMOTEROL FUMARATE DIHYDRATE
  10. DESVENLAFAX [Concomitant]
  11. PACERONE [Concomitant]
     Active Substance: AMIODARONE HYDROCHLORIDE
  12. ESCITALOPRAM [Concomitant]
     Active Substance: ESCITALOPRAM OXALATE
  13. CALCIUM ACETATE. [Concomitant]
     Active Substance: CALCIUM ACETATE
  14. TRINTELLIX [Concomitant]
     Active Substance: VORTIOXETINE HYDROBROMIDE
  15. AMIODARONE [Concomitant]
     Active Substance: AMIODARONE
  16. LEVOTHYROXIN [Concomitant]
     Active Substance: LEVOTHYROXINE
  17. NAMZARIC [Concomitant]
     Active Substance: DONEPEZIL HYDROCHLORIDE\MEMANTINE HYDROCHLORIDE
  18. VELTASSA [Suspect]
     Active Substance: PATIROMER
     Indication: HYPERKALAEMIA
     Route: 048
     Dates: start: 20170504
  19. AMOX/K CLAV [Concomitant]
     Active Substance: AMOXICILLIN\CLAVULANATE POTASSIUM
  20. PANTOPRAZOLE [Concomitant]
     Active Substance: PANTOPRAZOLE
  21. ELIQUIS [Concomitant]
     Active Substance: APIXABAN
  22. METOPROLOL. [Concomitant]
     Active Substance: METOPROLOL
  23. ALPRAZOLAM. [Concomitant]
     Active Substance: ALPRAZOLAM
  24. MIFEPRIN [Concomitant]

REACTIONS (3)
  - Arrhythmia [Not Recovered/Not Resolved]
  - Product dose omission issue [Unknown]
  - Cerebrovascular accident [Unknown]

NARRATIVE: CASE EVENT DATE: 20200804
